FAERS Safety Report 5816570-2 (Version None)
Quarter: 2008Q3

REPORT INFORMATION
  Report Type: 
  Country: None (occurrence: None)
  Receive Date: 20080721
  Receipt Date: 20080716
  Transmission Date: 20090109
  Serious: Yes (Other)
  Sender: FDA-Public Use
  Company Number: JP-AVENTIS-200811342JP

PATIENT
  Age: 68 Year
  Sex: Female
  Weight: 38.9 kg

DRUGS (16)
  1. LANTUS [Suspect]
     Indication: DIABETES MELLITUS
     Dosage: DOSE: 4 UNITS/DAY
     Route: 058
     Dates: start: 20071025, end: 20071106
  2. LANTUS [Suspect]
     Dosage: DOSE: 6 UNITS/DAY
     Route: 058
     Dates: start: 20071107, end: 20071204
  3. LANTUS [Suspect]
     Dosage: DOSE: 8 UNITS/DAY
     Route: 058
     Dates: start: 20071205, end: 20080416
  4. OPTICLIK (INSULIN INJECTION PEN) [Suspect]
     Indication: DIABETES MELLITUS
  5. BASEN [Suspect]
     Indication: DIABETES MELLITUS
     Dates: start: 20071128, end: 20080408
  6. MEVALOTIN [Suspect]
     Dates: start: 20080117, end: 20080408
  7. BUP-4 [Suspect]
     Dates: start: 20080206, end: 20080331
  8. BLADDERON [Suspect]
     Dates: start: 20080206, end: 20080331
  9. MAGNESIUM OXIDE [Concomitant]
     Indication: CONSTIPATION
  10. NOVORAPID [Concomitant]
     Indication: DIABETES MELLITUS
     Dosage: DOSE: 16 UNITS/DAY
     Route: 058
     Dates: start: 20071025
  11. NOVORAPID [Concomitant]
     Dosage: DOSE: 18 UNITS/DAY
  12. NOVORAPID [Concomitant]
     Dosage: DOSE: 20 UNITS/DAY
  13. NOVORAPID [Concomitant]
     Dosage: DOSE: 22 UNITS/DAY
  14. NOVORAPID [Concomitant]
     Dosage: DOSE: 24 UNITS/DAY
  15. NOVORAPID [Concomitant]
     Dosage: DOSE: 18 UNITS/DAY
  16. NOVORAPID [Concomitant]
     Dosage: DOSE: 16 UNITS/DAY

REACTIONS (1)
  - HEPATIC FUNCTION ABNORMAL [None]
